FAERS Safety Report 16174014 (Version 1)
Quarter: 2019Q2

REPORT INFORMATION
  Report Type: Spontaneous
  Country: IL (occurrence: IL)
  Receive Date: 20190409
  Receipt Date: 20190409
  Transmission Date: 20190711
  Serious: Yes (Hospitalization)
  Sender: FDA-Public Use
  Company Number: IL-009507513-1904ISR001378

PATIENT
  Age: 83 Year
  Sex: Male

DRUGS (6)
  1. SIMVAXON [Concomitant]
     Dosage: UNK
  2. MICROPIRIN [Concomitant]
     Active Substance: ASPIRIN
     Dosage: UNK
  3. BONDORMIN [Concomitant]
     Active Substance: BROTIZOLAM
     Dosage: UNK
  4. VASODIP [Concomitant]
     Active Substance: LERCANIDIPINE HYDROCHLORIDE
     Dosage: UNK
  5. OCSAAR PLUS [Suspect]
     Active Substance: HYDROCHLOROTHIAZIDE\LOSARTAN POTASSIUM
     Indication: HYPERTENSION
     Dosage: UNK
     Route: 048
     Dates: start: 20171025
  6. NORMALOL [Concomitant]
     Active Substance: ATENOLOL
     Dosage: UNK

REACTIONS (2)
  - Confusional state [Unknown]
  - Hyponatraemia [Unknown]
